FAERS Safety Report 19251791 (Version 2)
Quarter: 2021Q2

REPORT INFORMATION
  Report Type: Spontaneous
  Country: US (occurrence: US)
  Receive Date: 20210513
  Receipt Date: 20210617
  Transmission Date: 20210717
  Serious: No
  Sender: FDA-Public Use
  Company Number: US-HETERO-HET2021US00946

PATIENT

DRUGS (1)
  1. LEVOFLOXACIN. [Suspect]
     Active Substance: LEVOFLOXACIN
     Indication: URINARY TRACT INFECTION
     Dosage: 750 MG, O.D.
     Route: 048
     Dates: start: 20210424, end: 20210429

REACTIONS (1)
  - Tendon pain [Recovering/Resolving]

NARRATIVE: CASE EVENT DATE: 20210425
